FAERS Safety Report 25503774 (Version 1)
Quarter: 2025Q3

REPORT INFORMATION
  Report Type: Spontaneous
  Country: CH (occurrence: CH)
  Receive Date: 20250702
  Receipt Date: 20250702
  Transmission Date: 20251020
  Serious: Yes (Hospitalization, Other)
  Sender: TEVA
  Company Number: CH-TEVA-VS-3346439

PATIENT
  Sex: Female

DRUGS (5)
  1. OXYCODONE [Suspect]
     Active Substance: OXYCODONE
     Indication: Eye pain
     Route: 065
  2. GABAPENTIN [Suspect]
     Active Substance: GABAPENTIN
     Indication: Eye pain
     Route: 065
  3. METAMIZOLE SODIUM [Suspect]
     Active Substance: METAMIZOLE SODIUM
     Indication: Eye pain
     Route: 065
  4. PENTOTHAL [Concomitant]
     Active Substance: THIOPENTAL SODIUM
     Indication: Induction of anaesthesia
     Route: 065
  5. ALCOHOL [Suspect]
     Active Substance: ALCOHOL
     Indication: Pain
     Route: 056

REACTIONS (6)
  - Treatment failure [Unknown]
  - Visual impairment [Unknown]
  - Injection site pain [Recovering/Resolving]
  - Blindness [Unknown]
  - Eye pain [Recovering/Resolving]
  - Neuropathy peripheral [Unknown]
